FAERS Safety Report 23196041 (Version 6)
Quarter: 2025Q1

REPORT INFORMATION
  Report Type: Report from Study
  Country: US (occurrence: US)
  Receive Date: 20231117
  Receipt Date: 20250120
  Transmission Date: 20250409
  Serious: Yes (Other)
  Sender: NOVARTIS
  Company Number: US-002147023-NVSC2023US243132

PATIENT
  Sex: Female

DRUGS (1)
  1. KESIMPTA [Suspect]
     Active Substance: OFATUMUMAB
     Indication: Multiple sclerosis
     Dosage: 20 MG, QMO, 0.4 ML
     Route: 030

REACTIONS (10)
  - Multiple sclerosis [Unknown]
  - Brain injury [Unknown]
  - Anxiety [Unknown]
  - Illness [Unknown]
  - Eye disorder [Unknown]
  - Headache [Unknown]
  - Fatigue [Unknown]
  - Amnesia [Unknown]
  - Malaise [Unknown]
  - Confusional state [Unknown]
